FAERS Safety Report 8140407-2 (Version None)
Quarter: 2012Q1

REPORT INFORMATION
  Report Type: 
  Country: None (occurrence: None)
  Receive Date: 20120216
  Receipt Date: 20120214
  Transmission Date: 20120608
  Serious: No
  Sender: FDA-Public Use
  Company Number: US-PFIZER INC-2012040975

PATIENT
  Sex: Female
  Weight: 77.098 kg

DRUGS (3)
  1. CELEBREX [Suspect]
     Indication: ARTHRITIS
     Dosage: 400 MG, DAILY
     Route: 048
     Dates: start: 20120201
  2. CELEBREX [Suspect]
     Indication: BACK PAIN
  3. CELEBREX [Suspect]
     Indication: ARTHRALGIA

REACTIONS (2)
  - DRUG INTOLERANCE [None]
  - DIARRHOEA [None]
